FAERS Safety Report 18933121 (Version 1)
Quarter: 2021Q1

REPORT INFORMATION
  Report Type: Spontaneous
  Country: US (occurrence: US)
  Receive Date: 20210223
  Receipt Date: 20210223
  Transmission Date: 20210420
  Serious: No
  Sender: FDA-Public Use
  Company Number: None

PATIENT
  Age: 70 Year
  Sex: Female

DRUGS (1)
  1. CAPECITABINE TAB 500MG [Suspect]
     Active Substance: CAPECITABINE
     Route: 048
     Dates: start: 202101

REACTIONS (6)
  - Thrombosis [None]
  - Abdominal pain [None]
  - Pleural effusion [None]
  - Rectal discharge [None]
  - Therapy interrupted [None]
  - Infection [None]

NARRATIVE: CASE EVENT DATE: 20210202
